FAERS Safety Report 9390864 (Version 3)
Quarter: 2013Q4

REPORT INFORMATION
  Report Type: Spontaneous
  Country: JP (occurrence: JP)
  Receive Date: 20130709
  Receipt Date: 20131018
  Transmission Date: 20140711
  Serious: Yes (Death, Hospitalization, Disabling)
  Sender: FDA-Public Use
  Company Number: PHHY2013JP071586

PATIENT
  Age: 73 Year
  Sex: Female
  Weight: 48 kg

DRUGS (5)
  1. ZOMETA [Suspect]
     Indication: METASTASES TO BONE
     Dosage: 4 MG, PER ADMINISTRATION
     Route: 041
     Dates: start: 20090819, end: 20121102
  2. FARMORUBICINE R.T.U. [Concomitant]
     Dosage: UNK UKN, UNK
     Dates: start: 20090318, end: 20090610
  3. FLUOROURACIL [Concomitant]
     Dosage: UNK UKN, UNK
     Dates: start: 20090318, end: 20090610
  4. PACLITAXEL [Concomitant]
     Dosage: UNK UKN, UNK
     Dates: start: 20090701
  5. HERCEPTIN [Concomitant]
     Dosage: UNK UKN, UNK
     Dates: start: 20101207

REACTIONS (7)
  - Breast cancer [Fatal]
  - Metastases to bone [Fatal]
  - Osteonecrosis of jaw [Not Recovered/Not Resolved]
  - Purulent discharge [Recovering/Resolving]
  - Hypophagia [Recovering/Resolving]
  - Oral pain [Recovered/Resolved]
  - Breath odour [Recovered/Resolved]
